FAERS Safety Report 11328567 (Version 1)
Quarter: 2015Q3

REPORT INFORMATION
  Report Type: Spontaneous
  Country: US (occurrence: US)
  Receive Date: 20150731
  Receipt Date: 20150731
  Transmission Date: 20151125
  Serious: No
  Sender: FDA-Public Use
  Company Number: PHEH2015US014083

PATIENT
  Sex: Female

DRUGS (4)
  1. FAMVIR [Suspect]
     Active Substance: FAMCICLOVIR
     Indication: MYELITIS
  2. VALTREX [Suspect]
     Active Substance: VALACYCLOVIR HYDROCHLORIDE
     Indication: MENINGOENCEPHALITIS HERPETIC
  3. VALTREX [Suspect]
     Active Substance: VALACYCLOVIR HYDROCHLORIDE
     Indication: MYELITIS
     Route: 065
  4. FAMVIR [Suspect]
     Active Substance: FAMCICLOVIR
     Indication: MENINGOENCEPHALITIS HERPETIC
     Dosage: 500 MG, TID
     Route: 065

REACTIONS (1)
  - Drug ineffective [Unknown]
